FAERS Safety Report 16111478 (Version 1)
Quarter: 2019Q2

REPORT INFORMATION
  Report Type: Spontaneous
  Country: US (occurrence: US)
  Receive Date: 20190322
  Receipt Date: 20190322
  Transmission Date: 20190711
  Serious: Yes (Hospitalization, Other)
  Sender: FDA-Public Use
  Company Number: None

PATIENT
  Age: 12 Year
  Sex: Male
  Weight: 53.55 kg

DRUGS (7)
  1. PROAIR INHALER [Concomitant]
     Active Substance: ALBUTEROL SULFATE
  2. SINGULAIR [Concomitant]
     Active Substance: MONTELUKAST SODIUM
  3. ALBUTEROL NEB PRN [Concomitant]
  4. OSELTAMIVIR PHOSPHATE. [Suspect]
     Active Substance: OSELTAMIVIR PHOSPHATE
     Indication: ANTIVIRAL PROPHYLAXIS
     Dosage: ?          QUANTITY:1 CAPSULE(S);?
     Route: 048
     Dates: start: 20190219, end: 20190225
  5. MOTRIN PRN [Concomitant]
  6. NEBULIZER [Concomitant]
     Active Substance: DEVICE
  7. ZYRTEC [Concomitant]
     Active Substance: CETIRIZINE HYDROCHLORIDE

REACTIONS (4)
  - Confusional state [None]
  - Obsessive-compulsive symptom [None]
  - Abnormal behaviour [None]
  - Hallucination [None]

NARRATIVE: CASE EVENT DATE: 20190222
